FAERS Safety Report 14186229 (Version 2)
Quarter: 2017Q4

REPORT INFORMATION
  Report Type: Spontaneous
  Country: RO (occurrence: RO)
  Receive Date: 20171114
  Receipt Date: 20171214
  Transmission Date: 20180321
  Serious: Yes (Death)
  Sender: FDA-Public Use
  Company Number: RO-AMGEN-ROUSP2017170377

PATIENT
  Age: 42 Year
  Sex: Male
  Weight: 60 kg

DRUGS (4)
  1. PANTOPRAZOL [Concomitant]
     Active Substance: PANTOPRAZOLE SODIUM
     Indication: DUODENAL ULCER
     Dosage: 20 MG, UNK
     Route: 048
     Dates: start: 20151009, end: 20171003
  2. ENBREL [Suspect]
     Active Substance: ETANERCEPT
     Indication: ANKYLOSING SPONDYLITIS
     Dosage: 50 MG, WEEKLY
     Route: 058
     Dates: start: 20130115, end: 20170915
  3. ALPHA D3 [Concomitant]
     Active Substance: ALFACALCIDOL
     Indication: OSTEOPOROSIS
     Dosage: 50 UG, UNK
     Route: 048
     Dates: start: 20151009, end: 20171003
  4. TRAMADOL. [Concomitant]
     Active Substance: TRAMADOL
     Indication: ANKYLOSING SPONDYLITIS
     Dosage: 50 MG, UNK
     Route: 048
     Dates: start: 20101016, end: 20171019

REACTIONS (2)
  - Clostridial infection [Fatal]
  - Megacolon [Fatal]

NARRATIVE: CASE EVENT DATE: 20171019
